FAERS Safety Report 23563366 (Version 4)
Quarter: 2025Q1

REPORT INFORMATION
  Report Type: Spontaneous
  Country: US (occurrence: US)
  Receive Date: 20240226
  Receipt Date: 20250129
  Transmission Date: 20250408
  Serious: No
  Sender: SANOFI AVENTIS
  Company Number: US-SA-SAC20240222000488

PATIENT
  Age: 38 Year
  Sex: Male
  Weight: 114.76 kg

DRUGS (1)
  1. REZUROCK [Suspect]
     Active Substance: BELUMOSUDIL
     Indication: Chronic graft versus host disease
     Dosage: 200 MG, QD
     Route: 048
     Dates: start: 20220720

REACTIONS (5)
  - Depression [Unknown]
  - General physical health deterioration [Unknown]
  - Pain [Unknown]
  - Emotional disorder [Unknown]
  - Depressed mood [Unknown]
